FAERS Safety Report 9554380 (Version 2)
Quarter: 2013Q4

REPORT INFORMATION
  Report Type: Report from Study
  Country: AU (occurrence: AU)
  Receive Date: 20130925
  Receipt Date: 20131008
  Transmission Date: 20140711
  Serious: Yes (Death, Other)
  Sender: FDA-Public Use
  Company Number: AU-PFIZER INC-2013272505

PATIENT
  Age: 58 Year
  Sex: Female

DRUGS (3)
  1. SIMVASTATIN [Suspect]
     Dosage: {80 MG, UNK
  2. SIMVASTATIN [Interacting]
     Dosage: 80 MG, UNK
  3. GEMFIBROZIL [Interacting]
     Dosage: 600 MG, UNK

REACTIONS (2)
  - Rhabdomyolysis [Fatal]
  - Drug interaction [Unknown]
